FAERS Safety Report 10723492 (Version 1)
Quarter: 2015Q1

REPORT INFORMATION
  Report Type: Spontaneous
  Country: US (occurrence: US)
  Receive Date: 20150120
  Receipt Date: 20150120
  Transmission Date: 20150721
  Serious: Yes (Hospitalization, Other)
  Sender: FDA-Public Use
  Company Number: US-AMGEN-USASP2015003542

PATIENT
  Age: 90 Year
  Sex: Female

DRUGS (9)
  1. NAMENDA [Concomitant]
     Active Substance: MEMANTINE HYDROCHLORIDE
     Dosage: 28 MG, UNK
  2. AMIODARONE [Concomitant]
     Active Substance: AMIODARONE
     Dosage: 200 MG, UNK
  3. PROLIA [Suspect]
     Active Substance: DENOSUMAB
     Indication: PRODUCT USED FOR UNKNOWN INDICATION
     Dosage: UNK
     Route: 065
     Dates: start: 20140512
  4. ESCITALOPRAM [Concomitant]
     Active Substance: ESCITALOPRAM OXALATE
     Dosage: 10 MG, UNK
  5. CALCIUM PLUS VITAMIN D [Concomitant]
     Active Substance: CALCIUM\VITAMIN D
     Dosage: 600+1 QPM
  6. VERAPAMIL [Concomitant]
     Active Substance: VERAPAMIL HYDROCHLORIDE
     Dosage: 120 MG, UNK
  7. LIPITOR [Concomitant]
     Active Substance: ATORVASTATIN CALCIUM
     Dosage: 20 MG, UNK
  8. UBIQUINONE [Concomitant]
     Dosage: 100 MG, UNK
  9. LORAZEPAM. [Concomitant]
     Active Substance: LORAZEPAM
     Dosage: 0.5 MG, UNK

REACTIONS (2)
  - Fall [Unknown]
  - Hip fracture [Recovering/Resolving]

NARRATIVE: CASE EVENT DATE: 201501
